FAERS Safety Report 9676221 (Version 1)
Quarter: 2013Q4

REPORT INFORMATION
  Report Type: Spontaneous
  Country: CN (occurrence: CN)
  Receive Date: 20131107
  Receipt Date: 20131107
  Transmission Date: 20140711
  Serious: Yes (Hospitalization)
  Sender: FDA-Public Use
  Company Number: CN-ASTRAZENECA-2013SE79900

PATIENT
  Age: 89 Year
  Sex: Male

DRUGS (5)
  1. NEXIUM [Suspect]
     Indication: GASTRIC ULCER
     Route: 048
     Dates: start: 201010
  2. NEXIUM [Suspect]
     Indication: GASTRIC ULCER
     Route: 048
  3. NEXIUM [Suspect]
     Indication: GASTRIC ULCER
     Route: 048
     Dates: start: 20131020
  4. CHINESE PATENT DRUG [Concomitant]
  5. BETALOC [Concomitant]
     Indication: HYPERTENSION
     Route: 048

REACTIONS (5)
  - Gastric haemorrhage [Unknown]
  - Gastric cancer [Unknown]
  - Regurgitation [Unknown]
  - Urticaria [Unknown]
  - Intentional drug misuse [Unknown]
